FAERS Safety Report 6344693-0 (Version None)
Quarter: 2009Q3

REPORT INFORMATION
  Report Type: 
  Country: None (occurrence: None)
  Receive Date: 20090821
  Receipt Date: 20090508
  Transmission Date: 20100115
  Serious: No
  Sender: FDA-Public Use
  Company Number: 8046078

PATIENT
  Sex: Female

DRUGS (5)
  1. CIMZIA [Suspect]
     Dosage: /M
     Dates: start: 20081201, end: 20090321
  2. PLAQUINOL [Concomitant]
  3. IRON [Concomitant]
  4. PREDNISONE [Concomitant]
  5. VITAMIN B-12 [Concomitant]

REACTIONS (1)
  - RASH ERYTHEMATOUS [None]
